FAERS Safety Report 19978671 (Version 2)
Quarter: 2021Q4

REPORT INFORMATION
  Report Type: Spontaneous
  Country: JP (occurrence: JP)
  Receive Date: 20211020
  Receipt Date: 20211117
  Transmission Date: 20220303
  Serious: Yes (Other)
  Sender: FDA-Public Use
  Company Number: JP-ORGANON-O2110JPN001874

PATIENT
  Age: 63 Year
  Sex: Female

DRUGS (6)
  1. MOMETASONE FUROATE [Suspect]
     Active Substance: MOMETASONE FUROATE
     Indication: Rhinitis allergic
     Dosage: 2 DOSAGE FORM, QD
     Route: 045
     Dates: start: 20210304, end: 20210304
  2. VILDAGLIPTIN [Concomitant]
     Active Substance: VILDAGLIPTIN
     Dosage: 1 TAB, BID
     Route: 065
     Dates: start: 20210304
  3. CANDESARTAN CILEXETIL [Concomitant]
     Active Substance: CANDESARTAN CILEXETIL
     Dosage: 1 TAB, QD
     Route: 065
     Dates: start: 20210304
  4. AZELNIDIPINE [Concomitant]
     Active Substance: AZELNIDIPINE
     Dosage: 1 TAB, QD
     Route: 065
     Dates: start: 20210304
  5. LEVOCETIRIZINE HYDROCHLORIDE [Concomitant]
     Active Substance: LEVOCETIRIZINE HYDROCHLORIDE
     Dosage: 1 TAB, QD
     Route: 065
     Dates: start: 20210304
  6. PATANOL [Concomitant]
     Active Substance: OLOPATADINE HYDROCHLORIDE
     Dosage: 1 DOSAGE FORM, BID(FORMULATION REPORTED AS OPHTHALMIC SOLUTION)
     Route: 065
     Dates: start: 20210304

REACTIONS (2)
  - Alopecia [Not Recovered/Not Resolved]
  - Off label use [Unknown]

NARRATIVE: CASE EVENT DATE: 20210304
